FAERS Safety Report 11176827 (Version 1)
Quarter: 2015Q2

REPORT INFORMATION
  Report Type: Spontaneous
  Country: US (occurrence: US)
  Receive Date: 20150610
  Receipt Date: 20150610
  Transmission Date: 20150821
  Serious: Yes (Hospitalization)
  Sender: FDA-Public Use
  Company Number: US-CIPLA LTD.-2015US04414

PATIENT

DRUGS (1)
  1. RISPERIDONE. [Suspect]
     Active Substance: RISPERIDONE
     Indication: PSYCHOTIC DISORDER
     Dosage: 1 MG, BID
     Route: 048

REACTIONS (3)
  - Palpitations [Recovered/Resolved]
  - Wolff-Parkinson-White syndrome [Recovered/Resolved]
  - Accessory cardiac pathway [Recovered/Resolved]
